FAERS Safety Report 4987618-2 (Version None)
Quarter: 2006Q2

REPORT INFORMATION
  Report Type: 
  Country: None (occurrence: None)
  Receive Date: 20060426
  Receipt Date: 20060414
  Transmission Date: 20061013
  Serious: Yes (Other)
  Sender: FDA-Public Use
  Company Number: 2006052041

PATIENT
  Age: 54 Year
  Sex: Male

DRUGS (6)
  1. VFEND [Suspect]
     Indication: FUNGAL INFECTION
     Dosage: SEE IMAGE
     Route: 042
     Dates: start: 20060317, end: 20060320
  2. VFEND [Suspect]
     Indication: FUNGAL INFECTION
     Dosage: SEE IMAGE
     Route: 042
     Dates: start: 20060321, end: 20060414
  3. OXYCONTIN [Concomitant]
  4. VIT K CAP [Concomitant]
  5. ASPARA-CA             (ASPARTATE CALCIUM) [Concomitant]
  6. MAGNESIUM OXIDE               (MAGNESIUM OXIDE) [Concomitant]

REACTIONS (3)
  - GUILLAIN-BARRE SYNDROME [None]
  - NEOPLASM [None]
  - NERVE COMPRESSION [None]
